FAERS Safety Report 5162264-9 (Version None)
Quarter: 2006Q4

REPORT INFORMATION
  Report Type: 
  Country: None (occurrence: None)
  Receive Date: 20061121
  Receipt Date: 20061110
  Transmission Date: 20070319
  Serious: Yes (Death)
  Sender: FDA-Public Use
  Company Number: 2006S1009561

PATIENT
  Age: 76 Year
  Sex: Male

DRUGS (11)
  1. CLOZAPINE [Suspect]
     Dosage: 75 MG; HS; PO
     Route: 048
     Dates: start: 20060601, end: 20060101
  2. SORBITOL [Concomitant]
  3. SENNA ALEXANDRINA [Concomitant]
  4. PLANTAGO OVATA [Concomitant]
  5. MIRTAZAPINE [Concomitant]
  6. DONEPEZIL HYDROCHLORIDE [Concomitant]
  7. ACETAMINOPHEN [Concomitant]
  8. SINEMET [Concomitant]
  9. LANSOPRAZOLE [Concomitant]
  10. CALCIUM D3 [Concomitant]
  11. MORNIFLUMATE [Concomitant]

REACTIONS (4)
  - ACUTE MYOCARDIAL INFARCTION [None]
  - ASPIRATION [None]
  - CHEST X-RAY ABNORMAL [None]
  - NEUTROPHIL COUNT DECREASED [None]
